FAERS Safety Report 6543127-0 (Version None)
Quarter: 2010Q1

REPORT INFORMATION
  Report Type: 
  Country: None (occurrence: None)
  Receive Date: 20100120
  Receipt Date: 20100114
  Transmission Date: 20100710
  Serious: Yes (Hospitalization, Other)
  Sender: FDA-Public Use
  Company Number: PHHY2010MX02218

PATIENT
  Sex: Male

DRUGS (1)
  1. EXELON [Suspect]
     Indication: DEMENTIA ALZHEIMER'S TYPE
     Dosage: 5CM2, ONE PER DAY
     Dates: start: 20090601, end: 20091108

REACTIONS (3)
  - HAEMATEMESIS [None]
  - HEPATIC CIRRHOSIS [None]
  - SYNCOPE [None]
